FAERS Safety Report 6257407-X (Version None)
Quarter: 2009Q3

REPORT INFORMATION
  Report Type: 
  Country: None (occurrence: None)
  Receive Date: 20090701
  Receipt Date: 20090701
  Transmission Date: 20100115
  Serious: Yes (Other)
  Sender: FDA-Public Use
  Company Number: None

PATIENT
  Sex: Female

DRUGS (3)
  1. RE METHYLPHEN RIV [Suspect]
     Indication: BLADDER DISCOMFORT
     Dosage: 1 TABLET QID PO
     Route: 048
     Dates: start: 20090619, end: 20090630
  2. RE METHYLPHEN RIV [Suspect]
     Indication: BLADDER PAIN
     Dosage: 1 TABLET QID PO
     Route: 048
     Dates: start: 20090619, end: 20090630
  3. RE METHYLPHEN RIV [Suspect]
     Indication: URINARY TRACT INFECTION
     Dosage: 1 TABLET QID PO
     Route: 048
     Dates: start: 20090619, end: 20090630

REACTIONS (4)
  - DISCOMFORT [None]
  - DRUG INEFFECTIVE [None]
  - PAIN [None]
  - PRODUCT COLOUR ISSUE [None]
